FAERS Safety Report 6483611-1 (Version None)
Quarter: 2009Q4

REPORT INFORMATION
  Report Type: 
  Country: None (occurrence: None)
  Receive Date: 20091209
  Receipt Date: 20091202
  Transmission Date: 20100525
  Serious: Yes (Hospitalization)
  Sender: FDA-Public Use
  Company Number: GXBR2009US02130

PATIENT
  Sex: Male
  Weight: 122.45 kg

DRUGS (6)
  1. NABUMETONE TABLETS (NGX) [Suspect]
     Dosage: 750 MG, QID
     Route: 048
     Dates: start: 20090602, end: 20090701
  2. ROBAXIN [Suspect]
     Dosage: UNK
  3. MEDROL [Concomitant]
     Indication: INFLAMMATION
     Dosage: UNK
     Dates: start: 20090601
  4. CYMBALTA [Concomitant]
     Indication: ANXIETY
     Dosage: UNK
     Dates: start: 20081101
  5. PRILOSEC [Concomitant]
     Indication: GASTROOESOPHAGEAL REFLUX DISEASE
     Dosage: UNK
     Dates: start: 20000101
  6. LORTAB [Concomitant]
     Indication: PAIN
     Dosage: 10 MG, BID
     Dates: start: 20081101

REACTIONS (15)
  - APPENDICECTOMY [None]
  - APPENDICITIS [None]
  - CONDITION AGGRAVATED [None]
  - CONFUSIONAL STATE [None]
  - DIZZINESS [None]
  - DYSKINESIA [None]
  - GASTROOESOPHAGEAL REFLUX DISEASE [None]
  - LIVER FUNCTION TEST ABNORMAL [None]
  - MIGRAINE [None]
  - NERVE INJURY [None]
  - PAIN IN EXTREMITY [None]
  - PARKINSONISM [None]
  - RENAL FUNCTION TEST ABNORMAL [None]
  - VISUAL IMPAIRMENT [None]
  - WRONG DRUG ADMINISTERED [None]
